FAERS Safety Report 5342448-7 (Version None)
Quarter: 2007Q2

REPORT INFORMATION
  Report Type: 
  Country: None (occurrence: None)
  Receive Date: 20070601
  Receipt Date: 20070523
  Transmission Date: 20071010
  Serious: Yes (Hospitalization, Other)
  Sender: FDA-Public Use
  Company Number: US-PFIZER INC-2007011204

PATIENT
  Sex: Female

DRUGS (7)
  1. XANAX [Suspect]
     Indication: PANIC ATTACK
     Dosage: DAILY DOSE:1MG
  2. XANAX [Suspect]
     Indication: INSOMNIA
  3. PEGASYS [Suspect]
     Indication: HEPATITIS C VIRUS
     Dosage: DAILY DOSE:180MCG-FREQ:FREQUENCY: 1 PER WEEK
     Route: 058
  4. RIBAVIRIN [Suspect]
     Indication: HEPATITIS C VIRUS
     Route: 048
  5. BUSPIRONE [Concomitant]
  6. CELEXA [Concomitant]
  7. WELLBUTRIN [Concomitant]

REACTIONS (23)
  - ABDOMINAL DISTENSION [None]
  - ANAEMIA [None]
  - ARTHRALGIA [None]
  - ASTHENIA [None]
  - DEPRESSION [None]
  - DYSPEPSIA [None]
  - DYSPNOEA [None]
  - FATIGUE [None]
  - FEELING ABNORMAL [None]
  - HEADACHE [None]
  - HEART RATE IRREGULAR [None]
  - INSOMNIA [None]
  - MIGRAINE [None]
  - MUSCULOSKELETAL STIFFNESS [None]
  - MYALGIA [None]
  - NAUSEA [None]
  - PLATELET COUNT DECREASED [None]
  - PYREXIA [None]
  - RASH [None]
  - RED BLOOD CELL COUNT DECREASED [None]
  - SKIN LACERATION [None]
  - UNEVALUABLE EVENT [None]
  - WHITE BLOOD CELL COUNT DECREASED [None]
